FAERS Safety Report 10053007 (Version 2)
Quarter: 2015Q2

REPORT INFORMATION
  Report Type: Spontaneous
  Country: ES (occurrence: ES)
  Receive Date: 20140402
  Receipt Date: 20150520
  Transmission Date: 20150821
  Serious: Yes (Hospitalization)
  Sender: FDA-Public Use
  Company Number: PHHY2014ES037190

PATIENT
  Age: 52 Year
  Sex: Female

DRUGS (13)
  1. TACROLIMUS. [Interacting]
     Active Substance: TACROLIMUS
     Dosage: 7.5 MG, QD
     Route: 065
  2. TACROLIMUS. [Interacting]
     Active Substance: TACROLIMUS
     Dosage: 8 MG, QD
     Route: 065
  3. TACROLIMUS. [Interacting]
     Active Substance: TACROLIMUS
     Dosage: 9 MG, QD
     Route: 065
  4. ENOXAPARIN [Concomitant]
     Active Substance: ENOXAPARIN
     Indication: ANTICOAGULANT THERAPY
     Route: 065
  5. TACROLIMUS. [Interacting]
     Active Substance: TACROLIMUS
     Dosage: 8.5 MG, QD
     Route: 065
  6. RIVAROXABAN [Concomitant]
     Active Substance: RIVAROXABAN
     Indication: THROMBOSIS PROPHYLAXIS
     Dosage: 15 MG, QD
     Route: 065
  7. TACROLIMUS. [Suspect]
     Active Substance: TACROLIMUS
     Indication: RENAL TRANSPLANT
     Dosage: 10 MG, QD
     Route: 065
  8. TACROLIMUS. [Interacting]
     Active Substance: TACROLIMUS
     Dosage: 11.5 MG, QD
     Route: 065
  9. DRONEDARONE [Interacting]
     Active Substance: DRONEDARONE
     Dosage: 400 MG, QD
     Route: 065
  10. TACROLIMUS. [Interacting]
     Active Substance: TACROLIMUS
     Dosage: 8 MG, QD
     Route: 065
  11. RITUXIMAB [Concomitant]
     Active Substance: RITUXIMAB
     Indication: IMMUNE TOLERANCE INDUCTION
     Route: 065
     Dates: start: 2008
  12. TACROLIMUS. [Interacting]
     Active Substance: TACROLIMUS
     Dosage: 9 MG, QD
     Route: 065
  13. DRONEDARONE [Interacting]
     Active Substance: DRONEDARONE
     Indication: ARRHYTHMIA PROPHYLAXIS
     Dosage: 400 MG, Q12H
     Route: 065
     Dates: start: 201301

REACTIONS (7)
  - Renal impairment [Unknown]
  - Drug level above therapeutic [Recovering/Resolving]
  - Drug interaction [Unknown]
  - Blood creatinine increased [Recovered/Resolved]
  - Fluid overload [Recovering/Resolving]
  - Fatigue [Unknown]
  - Oedema [Recovering/Resolving]
